FAERS Safety Report 16005081 (Version 1)
Quarter: 2019Q1

REPORT INFORMATION
  Report Type: Spontaneous
  Country: PT (occurrence: PT)
  Receive Date: 20190226
  Receipt Date: 20190226
  Transmission Date: 20190418
  Serious: Yes (Other)
  Sender: FDA-Public Use
  Company Number: PT-TEVA-2019-PT-1016545

PATIENT
  Age: 57 Year
  Sex: Male

DRUGS (6)
  1. VITAMIN B12 [Concomitant]
     Active Substance: CYANOCOBALAMIN
     Indication: SUPPORTIVE CARE
     Dosage: 9/9W
     Route: 030
  2. PEMETREXED. [Suspect]
     Active Substance: PEMETREXED
     Indication: LUNG ADENOCARCINOMA STAGE III
     Route: 065
  3. CARBOPLATINUM [Suspect]
     Active Substance: CARBOPLATIN
     Indication: LUNG ADENOCARCINOMA STAGE III
     Dosage: EVERY 21 DAYS; RECEIVED CARBOPLATINUM WITH VINORELBINE AT AN UNKNOWN DOSAGE
     Route: 065
  4. CARBOPLATINUM [Suspect]
     Active Substance: CARBOPLATIN
     Indication: LUNG ADENOCARCINOMA STAGE III
     Dosage: RECEIVED CARBOPLATINUM REGIMEN CONTAINING CARBOPLATIN WITH PEMETREXED AT AN UNKNOWN DOSE
     Route: 065
  5. VINORELBINE [Suspect]
     Active Substance: VINORELBINE\VINORELBINE TARTRATE
     Indication: LUNG ADENOCARCINOMA STAGE III
     Dosage: RECEIVED VINORELBINE WITH CARBOPLATINUM AT AN UNKNOWN DOSAGE
     Route: 065
  6. FOLIC ACID. [Concomitant]
     Active Substance: FOLIC ACID
     Indication: SUPPORTIVE CARE
     Route: 048

REACTIONS (1)
  - Organising pneumonia [Recovering/Resolving]
